FAERS Safety Report 16740943 (Version 1)
Quarter: 2019Q3

REPORT INFORMATION
  Report Type: Spontaneous
  Country: US (occurrence: US)
  Receive Date: 20190826
  Receipt Date: 20190826
  Transmission Date: 20191005
  Serious: Yes (Death)
  Sender: FDA-Public Use
  Company Number: US-ADAMAS PHARMA, LLC-2019ADA01841

PATIENT
  Sex: Male

DRUGS (5)
  1. LEXAPRO [Concomitant]
     Active Substance: ESCITALOPRAM OXALATE
  2. NUPLAZID [Concomitant]
     Active Substance: PIMAVANSERIN TARTRATE
  3. RYTARY [Concomitant]
     Active Substance: CARBIDOPA\LEVODOPA
  4. LIPITOR [Concomitant]
     Active Substance: ATORVASTATIN CALCIUM
  5. GOCOVRI [Suspect]
     Active Substance: AMANTADINE
     Indication: DYSKINESIA
     Dosage: 205.5 MG, 1X/DAY AT BEDTIME
     Route: 048
     Dates: start: 20180312

REACTIONS (1)
  - Death [Fatal]
